FAERS Safety Report 8026599-4 (Version None)
Quarter: 2012Q1

REPORT INFORMATION
  Report Type: 
  Country: None (occurrence: None)
  Receive Date: 20120106
  Receipt Date: 20120103
  Transmission Date: 20120608
  Serious: No
  Sender: FDA-Public Use
  Company Number: US-BIOGENIDEC-2011BI030941

PATIENT
  Age: 35 Year
  Sex: Female

DRUGS (2)
  1. TYSABRI [Suspect]
     Indication: MULTIPLE SCLEROSIS
     Route: 042
     Dates: start: 20110106, end: 20110525
  2. TYSABRI [Suspect]
     Route: 042
     Dates: start: 20110921

REACTIONS (5)
  - OSTEOPOROSIS [None]
  - FALL [None]
  - LIGAMENT SPRAIN [None]
  - BALANCE DISORDER [None]
  - FOOT FRACTURE [None]
